FAERS Safety Report 4717415-4 (Version None)
Quarter: 2005Q3

REPORT INFORMATION
  Report Type: 
  Country: None (occurrence: None)
  Receive Date: 20050719
  Receipt Date: 20050524
  Transmission Date: 20060218
  Serious: Yes (Hospitalization)
  Sender: FDA-Public Use
  Company Number: ES-MERCK-0505ESP00036

PATIENT
  Age: 61 Year
  Sex: Female
  Weight: 60 kg

DRUGS (12)
  1. ZETIA [Suspect]
     Indication: BLOOD CHOLESTEROL INCREASED
     Route: 048
     Dates: start: 20050310
  2. ZETIA [Suspect]
     Indication: LOW DENSITY LIPOPROTEIN INCREASED
     Route: 048
     Dates: start: 20050310
  3. ACENOCOUMAROL [Suspect]
     Route: 048
  4. ATORVASTATIN CALCIUM [Concomitant]
     Indication: BLOOD CHOLESTEROL INCREASED
     Route: 048
  5. ATORVASTATIN CALCIUM [Concomitant]
     Indication: LOW DENSITY LIPOPROTEIN INCREASED
     Route: 048
  6. SERTRALINE HYDROCHLORIDE [Concomitant]
     Route: 048
  7. NITROGLYCERIN [Concomitant]
     Route: 065
  8. METFORMIN HYDROCHLORIDE [Concomitant]
     Route: 065
  9. AMLODIPINE BESYLATE [Concomitant]
     Route: 065
  10. LORAZEPAM [Concomitant]
     Route: 065
  11. TORSEMIDE [Concomitant]
     Route: 065
  12. ATENOLOL [Concomitant]
     Route: 065

REACTIONS (4)
  - ANAEMIA [None]
  - DRUG INTERACTION [None]
  - LOWER GASTROINTESTINAL HAEMORRHAGE [None]
  - MUSCLE HAEMORRHAGE [None]
